FAERS Safety Report 5018907-3 (Version None)
Quarter: 2006Q2

REPORT INFORMATION
  Report Type: 
  Country: None (occurrence: None)
  Receive Date: 20060531
  Receipt Date: 20060517
  Transmission Date: 20061013
  Serious: Yes (Life-Threatening, Hospitalization, Other)
  Sender: FDA-Public Use
  Company Number: 224989

PATIENT
  Age: 27 Year
  Sex: Male
  Weight: 31.7 kg

DRUGS (1)
  1. RITUXAN [Suspect]
     Indication: THROMBOTIC THROMBOCYTOPENIC PURPURA
     Dosage: SEE IMAGE
     Dates: start: 20060502

REACTIONS (9)
  - CHILLS [None]
  - CONDITION AGGRAVATED [None]
  - CONVULSION [None]
  - DEMYELINATION [None]
  - HYPOTENSION [None]
  - INFECTION [None]
  - INFUSION RELATED REACTION [None]
  - RESPIRATORY DEPRESSION [None]
  - THROMBOTIC THROMBOCYTOPENIC PURPURA [None]
